FAERS Safety Report 10204591 (Version 1)
Quarter: 2014Q2

REPORT INFORMATION
  Report Type: Spontaneous
  Country: US (occurrence: None)
  Receive Date: 20140527
  Receipt Date: 20140527
  Transmission Date: 20141212
  Serious: No
  Sender: FDA-Public Use
  Company Number: None

PATIENT
  Age: 37 Year
  Sex: Male

DRUGS (1)
  1. INH [Suspect]
     Indication: TUBERCULIN TEST POSITIVE
     Dates: start: 20120313, end: 20120808

REACTIONS (11)
  - Drug-induced liver injury [None]
  - Diarrhoea [None]
  - Blood alkaline phosphatase increased [None]
  - Inflammatory bowel disease [None]
  - Condition aggravated [None]
  - Pancreatitis [None]
  - Keratopathy [None]
  - Herpes simplex [None]
  - Alanine aminotransferase increased [None]
  - Pancreatitis chronic [None]
  - Autoimmune hepatitis [None]
